FAERS Safety Report 4540117-4 (Version None)
Quarter: 2004Q4

REPORT INFORMATION
  Report Type: 
  Country: None (occurrence: None)
  Receive Date: 20041223
  Receipt Date: 20041210
  Transmission Date: 20050328
  Serious: Yes (Death, Hospitalization)
  Sender: FDA-Public Use
  Company Number: 2004113030

PATIENT
  Age: 72 Year
  Sex: Female
  Weight: 90 kg

DRUGS (6)
  1. SOLU-MEDROL [Suspect]
     Indication: MONARTHRITIS
     Dates: start: 20040822, end: 20040830
  2. PERINDOPRIL (PERINDOPRIL) [Suspect]
     Indication: CARDIAC FAILURE
     Dosage: 2 MG (2 MG, DAILY)
     Dates: start: 19951011
  3. NITROGLYCERIN [Suspect]
     Indication: CARDIAC FAILURE
     Dates: start: 19951011
  4. ROFECOXIB [Suspect]
     Indication: MONARTHRITIS
     Dates: start: 20040825
  5. ETANERCEPT (ETANERCEPT) [Suspect]
     Indication: RHEUMATOID ARTHRITIS
     Dates: start: 20010611, end: 20040821
  6. ACETYLSALICYLATE LYSINE 9ACETYLSALICYLATE LYSINE) [Suspect]
     Indication: CARDIAC FAILURE
     Dates: start: 19951011

REACTIONS (5)
  - COLITIS [None]
  - GASTROINTESTINAL DISORDER [None]
  - PERITONITIS [None]
  - PNEUMOPERITONEUM [None]
  - SMALL INTESTINAL PERFORATION [None]
